FAERS Safety Report 24800112 (Version 1)
Quarter: 2025Q1

REPORT INFORMATION
  Report Type: Spontaneous
  Country: US (occurrence: US)
  Receive Date: 20250102
  Receipt Date: 20250102
  Transmission Date: 20250409
  Serious: Yes (Other)
  Sender: LEADING PHARMA
  Company Number: US-LEADINGPHARMA-US-2024LEASPO00618

PATIENT
  Age: 55 Year
  Sex: Male

DRUGS (4)
  1. HYDROCHLOROTHIAZIDE [Suspect]
     Active Substance: HYDROCHLOROTHIAZIDE
     Indication: Product used for unknown indication
     Route: 065
  2. LISINOPRIL [Suspect]
     Active Substance: LISINOPRIL
     Indication: Product used for unknown indication
     Route: 065
  3. METFORMIN [Suspect]
     Active Substance: METFORMIN HYDROCHLORIDE
     Indication: Product used for unknown indication
     Route: 065
  4. SILDENAFIL [Concomitant]
     Active Substance: SILDENAFIL
     Indication: Erectile dysfunction
     Route: 065

REACTIONS (4)
  - Angina pectoris [Unknown]
  - Acute myocardial infarction [Unknown]
  - Chest discomfort [Unknown]
  - Dyspnoea [Unknown]
